FAERS Safety Report 6370065-9 (Version None)
Quarter: 2009Q3

REPORT INFORMATION
  Report Type: 
  Country: None (occurrence: None)
  Receive Date: 20090923
  Receipt Date: 20070522
  Transmission Date: 20100115
  Serious: Yes (Hospitalization)
  Sender: FDA-Public Use
  Company Number: US-ASTRAZENECA-2006UW20181

PATIENT
  Age: 50 Year
  Sex: Male
  Weight: 99.8 kg

DRUGS (18)
  1. SEROQUEL [Suspect]
     Indication: SCHIZOPHRENIA
     Dosage: 100-600 MG
     Route: 048
     Dates: start: 20000201
  2. SEROQUEL [Suspect]
     Indication: DEPRESSION
     Dosage: 100-600 MG
     Route: 048
     Dates: start: 20000201
  3. SEROQUEL [Suspect]
     Route: 048
     Dates: start: 20031001, end: 20041201
  4. SEROQUEL [Suspect]
     Route: 048
     Dates: start: 20031001, end: 20041201
  5. RISPERDAL [Suspect]
     Indication: SCHIZOPHRENIA
     Dosage: 2 MG
     Dates: start: 20000301, end: 20030801
  6. RISPERDAL [Suspect]
     Indication: DEPRESSION
     Dosage: 2 MG
     Dates: start: 20000301, end: 20030801
  7. ZYPREXA [Concomitant]
     Dates: start: 20000101
  8. GEODON [Concomitant]
     Dates: start: 20060501
  9. LEXAPRO [Concomitant]
     Dosage: 30 MG TOTAL DAILY DOSE
     Dates: start: 20030101
  10. PRIMIDONE [Concomitant]
     Dates: start: 20060901
  11. CLONAZEPAM [Concomitant]
     Route: 048
  12. NORVASC [Concomitant]
     Route: 048
  13. CELEXA [Concomitant]
     Route: 048
  14. EFFEXOR [Concomitant]
     Dosage: 75-150 MG
     Route: 048
  15. CHLORTHALIDONE [Concomitant]
  16. PROCHLORPERAZINE [Concomitant]
  17. CYMBALTA [Concomitant]
     Route: 048
  18. LISINOPRIL [Concomitant]
     Route: 048

REACTIONS (6)
  - DIABETES MELLITUS [None]
  - DIZZINESS [None]
  - INFLUENZA LIKE ILLNESS [None]
  - PARAESTHESIA [None]
  - VISION BLURRED [None]
  - VISUAL IMPAIRMENT [None]
